FAERS Safety Report 4346477-1 (Version None)
Quarter: 2004Q2

REPORT INFORMATION
  Report Type: 
  Country: None (occurrence: None)
  Receive Date: 20040426
  Receipt Date: 20030618
  Transmission Date: 20050107
  Serious: Yes (Other)
  Sender: FDA-Public Use
  Company Number: US-BRISTOL-MYERS SQUIBB COMPANY-12304812

PATIENT
  Sex: Female

DRUGS (1)
  1. PARAPLATIN [Suspect]
     Indication: UTERINE CANCER

REACTIONS (2)
  - BONE MARROW DEPRESSION [None]
  - PANCYTOPENIA [None]
